FAERS Safety Report 5309984-0 (Version None)
Quarter: 2007Q2

REPORT INFORMATION
  Report Type: 
  Country: None (occurrence: None)
  Receive Date: 20070427
  Receipt Date: 20070420
  Transmission Date: 20071010
  Serious: Yes (Hospitalization)
  Sender: FDA-Public Use
  Company Number: US-ELI_LILLY_AND_COMPANY-US200704004633

PATIENT
  Age: 62 Year
  Sex: Female

DRUGS (2)
  1. FORTEO [Suspect]
     Dates: start: 20070314, end: 20070101
  2. TYLENOL W/ CODEINE [Concomitant]
     Indication: BACK PAIN
     Dates: start: 20070327, end: 20070329

REACTIONS (4)
  - PAIN [None]
  - RASH ERYTHEMATOUS [None]
  - RASH PRURITIC [None]
  - RASH VESICULAR [None]
